FAERS Safety Report 9555193 (Version 1)
Quarter: 2013Q3

REPORT INFORMATION
  Report Type: Spontaneous
  Country: US (occurrence: None)
  Receive Date: 20130724
  Receipt Date: 20130724
  Transmission Date: 20140515
  Serious: No
  Sender: FDA-Public Use
  Company Number: PHEH2013US005878

PATIENT
  Age: 33 Year
  Sex: Male
  Weight: 102 kg

DRUGS (5)
  1. GILENYA (FINGOLIMOD) CAPSULE, 0.5MG [Suspect]
     Indication: PRIMARY PROGRESSIVE MULTIPLE SCLEROSIS
     Route: 048
     Dates: start: 20130307
  2. NUVIGIL (ARMODAFINIL) [Concomitant]
  3. D3 (COLECALCIFEROL) [Concomitant]
  4. ZYRTEC ALLERGY (CETIRIZINE HYDROCHLORIDE) [Concomitant]
  5. WELLBUTRIN (BUPROPION HYDROCHLORIDE) [Concomitant]

REACTIONS (4)
  - Hypoaesthesia [None]
  - Decreased appetite [None]
  - Tremor [None]
  - Off label use [None]
